FAERS Safety Report 9868732 (Version 3)
Quarter: 2014Q1

REPORT INFORMATION
  Report Type: Spontaneous
  Country: US (occurrence: US)
  Receive Date: 20140204
  Receipt Date: 20140321
  Transmission Date: 20141002
  Serious: Yes (Other)
  Sender: FDA-Public Use
  Company Number: US-ASTRAZENECA-2014SE06180

PATIENT
  Age: 48 Year
  Sex: Female
  Weight: 67.6 kg

DRUGS (12)
  1. BRILINTA [Suspect]
     Indication: STENT PLACEMENT
     Route: 048
     Dates: start: 20131205, end: 20140119
  2. HUMALOG [Concomitant]
     Indication: TYPE 1 DIABETES MELLITUS
     Dosage: 23-24 UNITS OF HUMALOG A DAY, SLIDING SCALE DAILY
     Dates: start: 200709
  3. RAPAMUNE [Concomitant]
     Indication: IMMUNOSUPPRESSION
     Route: 048
     Dates: start: 200309
  4. RAPAMUNE [Concomitant]
     Indication: IMMUNOSUPPRESSION
     Dosage: 500MG OF RAPAMUNE IN THE MORNING AND 250MG AT NIGHT
     Route: 048
  5. CELLCEPT [Concomitant]
     Indication: IMMUNOSUPPRESSION
     Route: 048
     Dates: start: 200308
  6. ATORVASTATIN [Concomitant]
     Indication: BLOOD CHOLESTEROL ABNORMAL
     Route: 048
     Dates: start: 201401
  7. METOPROLOL TARTRATE [Concomitant]
     Indication: BLOOD PRESSURE ABNORMAL
     Route: 048
     Dates: start: 200308
  8. ALTACE [Concomitant]
     Indication: BLOOD PRESSURE ABNORMAL
     Route: 048
     Dates: start: 2005
  9. ALTACE [Concomitant]
     Indication: PROPHYLAXIS
     Route: 048
     Dates: start: 2005
  10. BACTRIM [Concomitant]
     Indication: PROPHYLAXIS
     Dosage: 400-80MG DAILY, SINGLE STRENGTH
     Route: 048
     Dates: start: 200308
  11. LEVOTHYROXINE [Concomitant]
     Indication: HYPOTHYROIDISM
     Route: 048
     Dates: start: 1982
  12. PLAVIX [Concomitant]
     Dates: start: 20140120

REACTIONS (3)
  - Blood glucose increased [Recovered/Resolved]
  - Glomerular filtration rate decreased [Recovered/Resolved]
  - Diabetes mellitus inadequate control [Unknown]
